FAERS Safety Report 20110424 (Version 1)
Quarter: 2021Q4

REPORT INFORMATION
  Report Type: Report from Study
  Country: JP (occurrence: JP)
  Receive Date: 20211124
  Receipt Date: 20211124
  Transmission Date: 20220303
  Serious: Yes (Other)
  Sender: FDA-Public Use
  Company Number: JP-TEVA-2021-JP-1974271

PATIENT
  Age: 79 Year
  Sex: Male
  Weight: 47 kg

DRUGS (6)
  1. RASAGILINE MESYLATE [Suspect]
     Active Substance: RASAGILINE MESYLATE
     Indication: Parkinson^s disease
     Dosage: 1 MILLIGRAM DAILY;
     Route: 065
     Dates: start: 20191018, end: 20211013
  2. LEVODOPA [Concomitant]
     Active Substance: LEVODOPA
  3. ZONISAMIDE [Concomitant]
     Active Substance: ZONISAMIDE
  4. ISTRADEFYLLINE [Concomitant]
     Active Substance: ISTRADEFYLLINE
     Dates: start: 20200604
  5. ROPINIROLE [Concomitant]
     Active Substance: ROPINIROLE
     Dosage: SLOW RELEASE TABLET
     Route: 065
  6. ROPINIROLE [Concomitant]
     Active Substance: ROPINIROLE
     Dosage: SLOW RELEASE TABLET
     Route: 065
     Dates: start: 20210223

REACTIONS (3)
  - Hallucination, visual [Recovered/Resolved]
  - Restlessness [Recovered/Resolved]
  - Insomnia [Recovered/Resolved]

NARRATIVE: CASE EVENT DATE: 20210927
